FAERS Safety Report 4810029-7 (Version None)
Quarter: 2005Q4

REPORT INFORMATION
  Report Type: 
  Country: None (occurrence: None)
  Receive Date: 20051026
  Receipt Date: 20051011
  Transmission Date: 20060501
  Serious: Yes (Hospitalization, Disabling, Other)
  Sender: FDA-Public Use
  Company Number: FRWYE047912OCT05

PATIENT
  Age: 62 Year
  Sex: Female

DRUGS (5)
  1. ENBREL [Suspect]
     Indication: RHEUMATOID ARTHRITIS
     Route: 058
     Dates: start: 20030301, end: 20050409
  2. MORPHINE [Concomitant]
     Dosage: UNKNOWN
  3. CORTISONE ACETATE TAB [Concomitant]
     Dosage: UNKNOWN
     Route: 048
  4. LEVOTHYROX [Concomitant]
     Dosage: UNKNOWN
     Route: 048
  5. MIOREL [Concomitant]
     Dosage: UNKNOWN
     Route: 048

REACTIONS (2)
  - ARTHRODESIS [None]
  - POLYNEUROPATHY [None]
